FAERS Safety Report 23257352 (Version 1)
Quarter: 2023Q4

REPORT INFORMATION
  Report Type: Spontaneous
  Country: US (occurrence: US)
  Receive Date: 20231204
  Receipt Date: 20231204
  Transmission Date: 20240109
  Serious: Yes (Other)
  Sender: FDA-Public Use
  Company Number: US-drreddys-LIT/USA/23/0187617

PATIENT
  Age: 67 Year
  Sex: Female

DRUGS (2)
  1. MELPHALAN [Suspect]
     Active Substance: MELPHALAN
     Indication: Stem cell transplant
  2. BORTEZOMIB [Concomitant]
     Active Substance: BORTEZOMIB
     Indication: Plasma cell myeloma

REACTIONS (1)
  - Inappropriate antidiuretic hormone secretion [Unknown]
